FAERS Safety Report 5244314-4 (Version None)
Quarter: 2007Q1

REPORT INFORMATION
  Report Type: 
  Country: None (occurrence: None)
  Receive Date: 20061201
  Receipt Date: 20060814
  Transmission Date: 20070707
  Serious: No
  Sender: FDA-Public Use
  Company Number: 2006PV019418

PATIENT
  Age: 55 Year
  Sex: Male
  Weight: 186.882 kg

DRUGS (4)
  1. BYETTA [Suspect]
     Indication: DIABETES MELLITUS INSULIN-DEPENDENT
     Dosage: SEE IMAGE
     Route: 058
     Dates: start: 20060628, end: 20060724
  2. BYETTA [Suspect]
     Indication: DIABETES MELLITUS INSULIN-DEPENDENT
     Dosage: SEE IMAGE
     Route: 058
     Dates: start: 20060725, end: 20060811
  3. NOVOLIN N [Concomitant]
  4. NOVOLIN R [Concomitant]

REACTIONS (3)
  - FATIGUE [None]
  - HYPOTENSION [None]
  - NAUSEA [None]
